FAERS Safety Report 7386800-7 (Version None)
Quarter: 2011Q1

REPORT INFORMATION
  Report Type: 
  Country: None (occurrence: None)
  Receive Date: 20110317
  Receipt Date: 20110224
  Transmission Date: 20110831
  Serious: Yes (Other)
  Sender: FDA-Public Use
  Company Number: OMX-2010-00155

PATIENT

DRUGS (1)
  1. EVICEL [Suspect]
     Indication: TISSUE SEALING

REACTIONS (5)
  - OFF LABEL USE [None]
  - PRODUCT QUALITY ISSUE [None]
  - PRODUCT ADHESION ISSUE [None]
  - GRAFT COMPLICATION [None]
  - EYE OPERATION COMPLICATION [None]
